FAERS Safety Report 5649922-4 (Version None)
Quarter: 2008Q1

REPORT INFORMATION
  Report Type: 
  Country: None (occurrence: None)
  Receive Date: 20080304
  Receipt Date: 20080225
  Transmission Date: 20080703
  Serious: Yes (Life-Threatening)
  Sender: FDA-Public Use
  Company Number: JP-BAYER-200810347BYL

PATIENT
  Age: 70 Year
  Sex: Male

DRUGS (2)
  1. CIPROXAN-I.V. [Suspect]
     Indication: WOUND INFECTION
     Dosage: TOTAL DAILY DOSE: 300 MG
     Route: 042
     Dates: start: 20080205, end: 20080205
  2. CIPROXAN-I.V. [Suspect]
     Dosage: TOTAL DAILY DOSE: 300 MG
     Route: 042
     Dates: start: 20080207, end: 20080207

REACTIONS (4)
  - DYSARTHRIA [None]
  - FACE OEDEMA [None]
  - LARYNGEAL OEDEMA [None]
  - PYREXIA [None]
